FAERS Safety Report 15453106 (Version 2)
Quarter: 2018Q4

REPORT INFORMATION
  Report Type: Report from Study
  Country: ES (occurrence: ES)
  Receive Date: 20181001
  Receipt Date: 20181102
  Transmission Date: 20190204
  Serious: Yes (Other)
  Sender: FDA-Public Use
  Company Number: ES-SA-2018SA266900

PATIENT
  Age: 81 Year
  Sex: Female

DRUGS (2)
  1. INSULIN GLARGINE [Suspect]
     Active Substance: INSULIN GLARGINE
     Indication: TYPE 2 DIABETES MELLITUS
     Dosage: 20 IU, UNK
     Route: 058
  2. EUCREAS [Concomitant]
     Active Substance: METFORMIN HYDROCHLORIDE\VILDAGLIPTIN
     Indication: TYPE 2 DIABETES MELLITUS
     Dosage: 1 DF, BID, 1-0-1
     Route: 048

REACTIONS (2)
  - Polymyalgia rheumatica [Not Recovered/Not Resolved]
  - Product dose omission [Unknown]

NARRATIVE: CASE EVENT DATE: 20180911
